FAERS Safety Report 14554432 (Version 4)
Quarter: 2018Q2

REPORT INFORMATION
  Report Type: Report from Study
  Country: KR (occurrence: KR)
  Receive Date: 20180220
  Receipt Date: 20180518
  Transmission Date: 20180711
  Serious: Yes (Hospitalization, Other)
  Sender: FDA-Public Use
  Company Number: KR-GILEAD-2018-0321451

PATIENT
  Age: 76 Year
  Sex: Female
  Weight: 39.6 kg

DRUGS (6)
  1. DOXORUBIN [Concomitant]
     Active Substance: DOXORUBICIN
     Dosage: 42 MG, UNK
  2. TENOFOVIR DISOPROXIL FUMARATE. [Suspect]
     Active Substance: TENOFOVIR DISOPROXIL FUMARATE
     Indication: HEPATITIS B
     Dosage: 300 MG, QD
     Route: 048
     Dates: start: 20180112, end: 20180514
  3. RITUXIMAB. [Concomitant]
     Active Substance: RITUXIMAB
     Dosage: 525 MG, UNK
  4. CYCLOPHOSPHAMIDE. [Concomitant]
     Active Substance: CYCLOPHOSPHAMIDE
     Dosage: 840 MG, UNK
  5. VINCRISTINE [Concomitant]
     Active Substance: VINCRISTINE
     Dosage: 1 MG, UNK
  6. SOLONDO [Concomitant]
     Active Substance: PREDNISOLONE
     Dosage: 40 MG, UNK

REACTIONS (3)
  - Mechanical ileus [Recovered/Resolved with Sequelae]
  - Ileus [Recovered/Resolved]
  - Ileus [Recovered/Resolved]

NARRATIVE: CASE EVENT DATE: 20180203
